FAERS Safety Report 7264764-4 (Version None)
Quarter: 2011Q1

REPORT INFORMATION
  Report Type: 
  Country: None (occurrence: None)
  Receive Date: 20110131
  Receipt Date: 20110117
  Transmission Date: 20110831
  Serious: Yes (Hospitalization)
  Sender: FDA-Public Use
  Company Number: NL-RANBAXY-2010RR-39961

PATIENT
  Age: 43 Year
  Sex: Female

DRUGS (2)
  1. INDOMETACIN [Suspect]
     Indication: MUSCULOSKELETAL PAIN
     Dosage: 75 MG, BID
  2. SERTRALINE HYDROCHLORIDE [Suspect]
     Indication: DEPRESSION
     Dosage: 100 MG, QD

REACTIONS (2)
  - SEROTONIN SYNDROME [None]
  - DRUG INTERACTION [None]
